FAERS Safety Report 6614218-0 (Version None)
Quarter: 2010Q1

REPORT INFORMATION
  Report Type: 
  Country: None (occurrence: None)
  Receive Date: 20100304
  Receipt Date: 20100304
  Transmission Date: 20100710
  Serious: Yes (Death)
  Sender: FDA-Public Use
  Company Number: DE-WYE-G05686510

PATIENT
  Age: 49 Year
  Sex: Female

DRUGS (1)
  1. TYGACIL [Suspect]
     Indication: PERITONITIS
     Dosage: UNKNOWN
     Route: 042

REACTIONS (1)
  - HEPATIC FAILURE [None]
